FAERS Safety Report 5764580-6 (Version None)
Quarter: 2008Q2

REPORT INFORMATION
  Report Type: 
  Country: None (occurrence: None)
  Receive Date: 20080604
  Receipt Date: 20080523
  Transmission Date: 20081010
  Serious: Yes (Death)
  Sender: FDA-Public Use
  Company Number: 2008S1008788

PATIENT
  Age: 73 Year
  Sex: Female
  Weight: 47.1741 kg

DRUGS (9)
  1. DOXEPIN HYDROCHLORIDE [Suspect]
     Dosage: 300 MG;AT BEDTIME;ORAL
     Route: 048
     Dates: start: 19990101, end: 20071011
  2. DOXEPIN HYDROCHLORIDE [Suspect]
     Dosage: 50 MG;AT BEDTIME;ORAL
     Route: 048
     Dates: start: 19990101, end: 20071011
  3. ALPRAZOLAM [Suspect]
     Dosage: 2.5 MG;DAILY;ORAL
     Route: 048
     Dates: start: 19930101, end: 20071011
  4. BUTALBITAL [Suspect]
     Indication: HEADACHE
     Dosage: ;ORAL
     Route: 048
     Dates: start: 20070101, end: 20071011
  5. NORVASC [Concomitant]
  6. LIPITOR [Concomitant]
  7. ZETIA [Concomitant]
  8. AVAPRO [Concomitant]
  9. ASPIRIN [Concomitant]

REACTIONS (3)
  - COMPLETED SUICIDE [None]
  - DIZZINESS [None]
  - MULTIPLE DRUG OVERDOSE INTENTIONAL [None]
